FAERS Safety Report 6996369-4 (Version None)
Quarter: 2010Q3

REPORT INFORMATION
  Report Type: 
  Country: None (occurrence: None)
  Receive Date: 20100918
  Receipt Date: 20090127
  Transmission Date: 20110219
  Serious: Yes (Other)
  Sender: FDA-Public Use
  Company Number: US-WYE-H07958409

PATIENT
  Sex: Female

DRUGS (4)
  1. EFFEXOR XR [Suspect]
     Indication: DEPRESSION
     Dosage: UNKNOWN
     Route: 048
     Dates: start: 20070101, end: 20080101
  2. EFFEXOR XR [Suspect]
     Dosage: TITRATED UP TO 150 MG
     Route: 048
     Dates: start: 20080101, end: 20090112
  3. ACIPHEX [Concomitant]
  4. XANAX [Concomitant]

REACTIONS (2)
  - BLOOD PRESSURE INCREASED [None]
  - DEPRESSION [None]
